FAERS Safety Report 4703994-X (Version None)
Quarter: 2005Q2

REPORT INFORMATION
  Report Type: 
  Country: None (occurrence: None)
  Receive Date: 20050630
  Receipt Date: 20050524
  Transmission Date: 20051028
  Serious: Yes (Other)
  Sender: FDA-Public Use
  Company Number: JP-ROCHE-405786

PATIENT
  Age: 58 Year
  Sex: Male

DRUGS (12)
  1. VESANOID [Suspect]
     Indication: ACUTE PROMYELOCYTIC LEUKAEMIA
     Route: 048
     Dates: start: 20050422, end: 20050422
  2. VESANOID [Suspect]
     Route: 048
     Dates: start: 20050507
  3. ZYLORIC [Concomitant]
     Route: 048
     Dates: start: 20050422
  4. BIOFERMIN [Concomitant]
     Route: 048
     Dates: start: 20050422
  5. CRAVIT [Concomitant]
     Route: 048
     Dates: start: 20050422
  6. POLYMYXIN B SULFATE [Concomitant]
     Dosage: UNIT REPORTED AS DF.
     Route: 048
     Dates: start: 20050422
  7. GASTER [Concomitant]
     Route: 048
     Dates: start: 20050422
  8. FUNGIZONE [Concomitant]
     Route: 048
     Dates: start: 20050422
  9. URALYT-U [Concomitant]
     Route: 048
     Dates: start: 20050422
  10. FRAGMIN [Concomitant]
     Dates: start: 20050422
  11. IDAMYCIN [Concomitant]
     Dates: start: 20050422, end: 20050423
  12. CYLOCIDE [Concomitant]
     Dates: start: 20050422, end: 20050426

REACTIONS (4)
  - DRUG ERUPTION [None]
  - EXANTHEM [None]
  - INCORRECT DOSE ADMINISTERED [None]
  - PURPURA [None]
